FAERS Safety Report 9881892 (Version 1)
Quarter: 2014Q1

REPORT INFORMATION
  Report Type: Spontaneous
  Country: US (occurrence: US)
  Receive Date: 20140207
  Receipt Date: 20140207
  Transmission Date: 20141002
  Serious: Yes (Other)
  Sender: FDA-Public Use
  Company Number: US-PFIZER INC-2014031039

PATIENT
  Age: 81 Year
  Sex: Female
  Weight: 37.19 kg

DRUGS (1)
  1. PREPARATION H HEMORRHOIDAL SUPPOSITORIES [Suspect]
     Dosage: UNK, 1X/DAY

REACTIONS (3)
  - Spinal fracture [Unknown]
  - Poor quality drug administered [Unknown]
  - Product quality issue [Unknown]
